FAERS Safety Report 24891624 (Version 31)
Quarter: 2025Q4

REPORT INFORMATION
  Report Type: Spontaneous
  Country: CA (occurrence: CA)
  Receive Date: 20250127
  Receipt Date: 20251024
  Transmission Date: 20260117
  Serious: Yes (Hospitalization, Other)
  Sender: ASTELLAS
  Company Number: CA-PFIZER INC-PV202500007005

PATIENT
  Age: 78 Year
  Sex: Male
  Weight: 78 kg

DRUGS (27)
  1. PADCEV [Suspect]
     Active Substance: ENFORTUMAB VEDOTIN-EJFV
     Indication: Transitional cell carcinoma metastatic
     Dosage: 96.2 MG, CYCLIC (D1 AND D8 OF 21-DAY CYCLE)?DRUG DOSAGE FORM: POWDER FOR SOLUTION FOR INFUSION
     Route: 042
     Dates: start: 20250113
  2. PADCEV [Suspect]
     Active Substance: ENFORTUMAB VEDOTIN-EJFV
     Dosage: 96.2 MG, CYCLIC (DAY 1 AND 8 FOR CYCLE OF 21 DAYS)?DRUG DOSAGE FORM: POWDER FOR SOLUTION FOR INFUSIO
     Route: 042
     Dates: start: 20250120
  3. PADCEV [Suspect]
     Active Substance: ENFORTUMAB VEDOTIN-EJFV
     Dosage: 105 MG?DRUG DOSAGE FORM: POWDER FOR SOLUTION FOR INFUSION
     Route: 042
     Dates: start: 20250203
  4. PADCEV [Suspect]
     Active Substance: ENFORTUMAB VEDOTIN-EJFV
     Dosage: 105 MG?DRUG DOSAGE FORM: POWDER FOR SOLUTION FOR INFUSION
     Route: 042
     Dates: start: 20250210
  5. PADCEV [Suspect]
     Active Substance: ENFORTUMAB VEDOTIN-EJFV
     Dosage: 78 MG?DRUG DOSAGE FORM: POWDER FOR SOLUTION FOR INFUSION
     Route: 042
     Dates: start: 20250331
  6. PADCEV [Suspect]
     Active Substance: ENFORTUMAB VEDOTIN-EJFV
     Dosage: 67 MG?DRUG DOSAGE FORM: POWDER FOR SOLUTION FOR INFUSION
     Route: 042
     Dates: start: 20250408
  7. PADCEV [Suspect]
     Active Substance: ENFORTUMAB VEDOTIN-EJFV
     Dosage: 67 MG?DRUG DOSAGE FORM: POWDER FOR SOLUTION FOR INFUSION
     Route: 042
     Dates: start: 20250421
  8. PADCEV [Suspect]
     Active Substance: ENFORTUMAB VEDOTIN-EJFV
     Dosage: 67 MG, D1 AND D8?DRUG DOSAGE FORM: POWDER FOR SOLUTION FOR INFUSION
     Route: 042
     Dates: start: 20250428
  9. PADCEV [Suspect]
     Active Substance: ENFORTUMAB VEDOTIN-EJFV
     Dosage: 67 MG, D1 AND D8?DRUG DOSAGE FORM: POWDER FOR SOLUTION FOR INFUSION
     Route: 042
     Dates: start: 20250512
  10. PADCEV [Suspect]
     Active Substance: ENFORTUMAB VEDOTIN-EJFV
     Dosage: 67 MG, D1 AND D8 OF 21-DAY CYCLE?DRUG DOSAGE FORM: POWDER FOR SOLUTION FOR INFUSION
     Route: 042
     Dates: start: 20250520
  11. PADCEV [Suspect]
     Active Substance: ENFORTUMAB VEDOTIN-EJFV
     Dosage: 73.5 MG, D1 AND D8 OF 21-DAY CYCLE?DRUG DOSAGE FORM: POWDER FOR SOLUTION FOR INFUSION
     Route: 042
     Dates: start: 20250602
  12. PADCEV [Suspect]
     Active Substance: ENFORTUMAB VEDOTIN-EJFV
     Dosage: 73.5 MG, D1 AND D8 OF 21-DAY CYCLE?DRUG DOSAGE FORM: POWDER FOR SOLUTION FOR INFUSION
     Route: 042
     Dates: start: 20250609
  13. PADCEV [Suspect]
     Active Substance: ENFORTUMAB VEDOTIN-EJFV
     Dosage: 73.5 MG, D1 AND D8 OF 21-DAY CYCLE, INFUSION #13?DRUG DOSAGE FORM: POWDER FOR SOLUTION FOR INFUSION
     Route: 042
     Dates: start: 20250707
  14. PADCEV [Suspect]
     Active Substance: ENFORTUMAB VEDOTIN-EJFV
     Dosage: 73.5 MG, D1 AND D8 OF 21-DAY CYCLE?DRUG DOSAGE FORM: POWDER FOR SOLUTION FOR INFUSION
     Route: 042
     Dates: start: 20250729
  15. PADCEV [Suspect]
     Active Substance: ENFORTUMAB VEDOTIN-EJFV
     Dosage: 73.5 MG, D1 AND D8 OF 21-DAY CYCLE?DRUG DOSAGE FORM: POWDER FOR SOLUTION FOR INFUSION
     Route: 042
     Dates: start: 20250805
  16. PADCEV [Suspect]
     Active Substance: ENFORTUMAB VEDOTIN-EJFV
     Dosage: 73.5 MG, D1 AND D8 OF 21-DAY CYCLE?DRUG DOSAGE FORM: POWDER FOR SOLUTION FOR INFUSION
     Route: 042
     Dates: start: 20250825
  17. PADCEV [Suspect]
     Active Substance: ENFORTUMAB VEDOTIN-EJFV
     Dosage: 73.5 MG, D1 AND D8 OF 21-DAY CYCLE?DRUG DOSAGE FORM: POWDER FOR SOLUTION FOR INFUSION
     Route: 042
     Dates: start: 20250902
  18. PADCEV [Suspect]
     Active Substance: ENFORTUMAB VEDOTIN-EJFV
     Dosage: 73.5 MG, D1 AND D8 OF 21-DAY CYCLE?DRUG DOSAGE FORM: POWDER FOR SOLUTION FOR INFUSION
     Route: 042
     Dates: start: 20250915
  19. PADCEV [Suspect]
     Active Substance: ENFORTUMAB VEDOTIN-EJFV
     Dosage: 73.5 MG, CYCLIC (D1 + D8)?DRUG DOSAGE FORM: POWDER FOR SOLUTION FOR INFUSION
     Route: 042
     Dates: start: 20250922
  20. PADCEV [Suspect]
     Active Substance: ENFORTUMAB VEDOTIN-EJFV
     Dosage: 73.5 MG, CYCLIC (D1 + D8)?DRUG DOSAGE FORM: POWDER FOR SOLUTION FOR INFUSION
     Route: 042
     Dates: start: 20251006
  21. PADCEV [Suspect]
     Active Substance: ENFORTUMAB VEDOTIN-EJFV
     Dosage: 73.5 MG, CYCLIC, (73.5MG D1 D8 OF 21 DAY CYCLE)?DRUG DOSAGE FORM: POWDER FOR SOLUTION FOR INFUSION
     Route: 042
     Dates: start: 20251016
  22. KEYTRUDA [Suspect]
     Active Substance: PEMBROLIZUMAB
     Indication: Product used for unknown indication
     Dosage: 200 MG
     Route: 042
     Dates: start: 20250331
  23. KEYTRUDA [Suspect]
     Active Substance: PEMBROLIZUMAB
     Dosage: 200 MG
     Route: 042
     Dates: start: 20250729
  24. KEYTRUDA [Suspect]
     Active Substance: PEMBROLIZUMAB
     Dosage: 200 MG, CYCLIC (EVERY 3 WEEKS)
     Route: 042
  25. GRAVOL [Concomitant]
     Active Substance: DIMENHYDRINATE
     Indication: Product used for unknown indication
     Dosage: ONGOING
     Route: 065
  26. PROCHLORAZINE [Concomitant]
     Indication: Nausea
     Dosage: 4X/DAY; ONGOING
     Route: 065
  27. ACETAMINOPHEN [Concomitant]
     Active Substance: ACETAMINOPHEN
     Indication: Pain
     Dosage: PRN
     Route: 065

REACTIONS (32)
  - Oral fungal infection [Recovering/Resolving]
  - Dehydration [Unknown]
  - Hypophagia [Unknown]
  - Calculus urinary [Unknown]
  - Metastases to bone [Unknown]
  - Dysphagia [Recovering/Resolving]
  - Bell^s palsy [Unknown]
  - Stoma site infection [Recovered/Resolved]
  - Urosepsis [Recovered/Resolved]
  - Paraesthesia [Not Recovered/Not Resolved]
  - Weight decreased [Not Recovered/Not Resolved]
  - Rash [Unknown]
  - Constipation [Recovered/Resolved]
  - Fatigue [Not Recovered/Not Resolved]
  - Pain [Not Recovered/Not Resolved]
  - Dry mouth [Not Recovered/Not Resolved]
  - Nausea [Recovered/Resolved]
  - Papule [Not Recovered/Not Resolved]
  - Nasal dryness [Unknown]
  - Decreased appetite [Not Recovered/Not Resolved]
  - Ageusia [Not Recovered/Not Resolved]
  - Skin disorder [Unknown]
  - Alopecia [Not Recovered/Not Resolved]
  - Dry skin [Not Recovered/Not Resolved]
  - Blood pressure increased [Recovered/Resolved]
  - Tongue ulceration [Not Recovered/Not Resolved]
  - Heart rate increased [Not Recovered/Not Resolved]
  - Heart rate decreased [Not Recovered/Not Resolved]
  - Off label use [Unknown]
  - Blood pressure systolic decreased [Not Recovered/Not Resolved]
  - Paraesthesia [Recovered/Resolved]
  - Hypoacusis [Not Recovered/Not Resolved]

NARRATIVE: CASE EVENT DATE: 20250101
